FAERS Safety Report 10376861 (Version 2)
Quarter: 2014Q4

REPORT INFORMATION
  Report Type: Spontaneous
  Country: US (occurrence: US)
  Receive Date: 20140811
  Receipt Date: 20141017
  Transmission Date: 20150528
  Serious: No
  Sender: FDA-Public Use
  Company Number: US-GILEAD-2014-0111283

PATIENT
  Age: 55 Year
  Sex: Male
  Weight: 81.63 kg

DRUGS (1)
  1. VIREAD [Suspect]
     Active Substance: TENOFOVIR DISOPROXIL FUMARATE
     Indication: CHRONIC HEPATITIS B
     Dosage: 300 MG, QD
     Route: 065
     Dates: start: 200903, end: 201409

REACTIONS (1)
  - Crystal urine present [Recovered/Resolved]

NARRATIVE: CASE EVENT DATE: 2014
